FAERS Safety Report 5522211-4 (Version None)
Quarter: 2007Q4

REPORT INFORMATION
  Report Type: 
  Country: None (occurrence: None)
  Receive Date: 20071120
  Receipt Date: 20071114
  Transmission Date: 20080405
  Serious: Yes (Life-Threatening)
  Sender: FDA-Public Use
  Company Number: B0496214A

PATIENT
  Age: 60 Year
  Sex: Male

DRUGS (3)
  1. AVANDAMET [Suspect]
     Indication: DIABETES MELLITUS
     Route: 048
     Dates: start: 20070511, end: 20070920
  2. RAMIPRIL [Concomitant]
     Dosage: 5MG PER DAY
  3. UNKNOWN DRUG [Concomitant]
     Dosage: 10MG PER DAY

REACTIONS (1)
  - MYOCARDIAL INFARCTION [None]
